FAERS Safety Report 23507300 (Version 1)
Quarter: 2024Q1

REPORT INFORMATION
  Report Type: Spontaneous
  Country: US (occurrence: US)
  Receive Date: 20240209
  Receipt Date: 20240209
  Transmission Date: 20240410
  Serious: No
  Sender: FDA-Public Use
  Company Number: US-JNJFOC-20240209631

PATIENT
  Sex: Male

DRUGS (5)
  1. RISPERDAL [Suspect]
     Active Substance: RISPERIDONE
     Indication: Bipolar disorder
     Route: 048
     Dates: end: 2010
  2. RISPERDAL [Suspect]
     Active Substance: RISPERIDONE
     Indication: Depression
  3. RISPERDAL [Suspect]
     Active Substance: RISPERIDONE
     Indication: Borderline personality disorder
  4. LITHIUM [Suspect]
     Active Substance: LITHIUM
     Indication: Depression
     Route: 065
     Dates: end: 2010
  5. LITHIUM [Suspect]
     Active Substance: LITHIUM
     Indication: Borderline personality disorder

REACTIONS (3)
  - Gynaecomastia [Unknown]
  - Somnolence [Unknown]
  - Mental disorder [Unknown]

NARRATIVE: CASE EVENT DATE: 20100101
